FAERS Safety Report 21257637 (Version 2)
Quarter: 2022Q3

REPORT INFORMATION
  Report Type: Spontaneous
  Country: US (occurrence: US)
  Receive Date: 20220826
  Receipt Date: 20220916
  Transmission Date: 20221027
  Serious: Yes (Other)
  Sender: FDA-Public Use
  Company Number: US-ADVANZ PHARMA-202208005323

PATIENT

DRUGS (1)
  1. PILOCARPINE [Suspect]
     Active Substance: PILOCARPINE
     Indication: Presbyopia
     Dosage: UNK, PILOCARPINE HYDROCHLORIDE OPHTHALMIC SOLUTION
     Route: 047

REACTIONS (1)
  - Rhegmatogenous retinal detachment [Recovered/Resolved]
